FAERS Safety Report 7645612-7 (Version None)
Quarter: 2011Q3

REPORT INFORMATION
  Report Type: 
  Country: None (occurrence: None)
  Receive Date: 20110729
  Receipt Date: 20110722
  Transmission Date: 20111222
  Serious: Yes (Other)
  Sender: FDA-Public Use
  Company Number: PHHY2011GB66245

PATIENT
  Age: 92 Year
  Sex: Female
  Weight: 59.2 kg

DRUGS (9)
  1. FUROSEMIDE [Concomitant]
  2. ASPIRIN [Concomitant]
  3. DOXAZOSIN MESYLATE [Suspect]
     Indication: HYPERTENSION
     Dosage: UNK
     Route: 048
     Dates: start: 20110709, end: 20110714
  4. ALENDRONIC ACID [Concomitant]
  5. QUININE SULFATE [Concomitant]
  6. AMLODIPINE [Concomitant]
  7. ANASTROZOLE [Concomitant]
  8. ATORVASTATIN [Concomitant]
  9. LANSOPRAZOLE [Concomitant]

REACTIONS (4)
  - THROMBOCYTOPENIA [None]
  - LYMPHOPENIA [None]
  - LEUKOPENIA [None]
  - NEUTROPENIA [None]
